FAERS Safety Report 11339513 (Version 2)
Quarter: 2016Q1

REPORT INFORMATION
  Report Type: Spontaneous
  Country: US (occurrence: US)
  Receive Date: 20150805
  Receipt Date: 20160321
  Transmission Date: 20160525
  Serious: No
  Sender: FDA-Public Use
  Company Number: PHEH2015US015005

PATIENT
  Age: 26 Year
  Sex: Female

DRUGS (1)
  1. COARTEM [Suspect]
     Active Substance: ARTEMETHER\LUMEFANTRINE
     Indication: MALARIA
     Dosage: UNK, (20 MG ARTE/ 120 MG LUME)
     Route: 048
     Dates: start: 20141031

REACTIONS (2)
  - Maternal exposure during pregnancy [Unknown]
  - Medication error [Unknown]

NARRATIVE: CASE EVENT DATE: 20141031
